FAERS Safety Report 13931863 (Version 2)
Quarter: 2017Q4

REPORT INFORMATION
  Report Type: Report from Study
  Country: US (occurrence: US)
  Receive Date: 20170904
  Receipt Date: 20171226
  Transmission Date: 20180320
  Serious: Yes (Hospitalization)
  Sender: FDA-Public Use
  Company Number: US-BIOGEN-2017BI00453487

PATIENT
  Age: 52 Year
  Sex: Female

DRUGS (1)
  1. PLEGRIDY [Suspect]
     Active Substance: PEGINTERFERON BETA-1A
     Indication: MULTIPLE SCLEROSIS
     Dosage: INJECT 125MCG SUBCUTANEOUSLY EVERY 15 DAYS
     Route: 058

REACTIONS (3)
  - Appendicitis [Recovered/Resolved]
  - Post procedural complication [Unknown]
  - Underdose [Unknown]

NARRATIVE: CASE EVENT DATE: 20170729
